FAERS Safety Report 5211681-7 (Version None)
Quarter: 2007Q1

REPORT INFORMATION
  Report Type: 
  Country: None (occurrence: None)
  Receive Date: 20070117
  Receipt Date: 20070117
  Transmission Date: 20070707
  Serious: No
  Sender: FDA-Public Use
  Company Number: None

PATIENT
  Age: 42 Year
  Sex: Female
  Weight: 72.5755 kg

DRUGS (1)
  1. TODAY [Suspect]
     Indication: CONTRACEPTION
     Dosage: 1000 MG   ONCE  VAG
     Route: 067
     Dates: start: 20060113, end: 20060113

REACTIONS (2)
  - DYSPNOEA [None]
  - PRURITUS GENERALISED [None]
